FAERS Safety Report 8819913 (Version 2)
Quarter: 2014Q2

REPORT INFORMATION
  Report Type: Spontaneous
  Country: US (occurrence: US)
  Receive Date: 20121001
  Receipt Date: 20131021
  Transmission Date: 20141212
  Serious: Yes (Other)
  Sender: FDA-Public Use
  Company Number: US-ASTRAZENECA-2012SE72770

PATIENT
  Age: 80 Year
  Sex: Male
  Weight: 108.9 kg

DRUGS (7)
  1. ATENOLOL [Suspect]
     Indication: HYPERTENSION
     Route: 048
  2. OMEPRAZOLE [Suspect]
     Indication: GASTROOESOPHAGEAL REFLUX DISEASE
     Route: 048
     Dates: start: 1992
  3. SYMBICORT PMDI [Suspect]
     Indication: PULMONARY FIBROSIS
     Dosage: 160 MCG, TWO PUFFS TWO TIMES A DAY
     Route: 055
     Dates: start: 201208
  4. SYMBICORT PMDI [Suspect]
     Indication: PULMONARY FIBROSIS
     Dosage: 80/4.5 MCG, TWO PUFFS TWO TIMES A DAY
     Route: 055
     Dates: start: 201208
  5. ASPIRIN [Concomitant]
     Indication: TRANSIENT ISCHAEMIC ATTACK
     Route: 048
     Dates: start: 1992
  6. HYDROCHLOROTHIAZIDE [Concomitant]
     Indication: HYPERTENSION
     Route: 048
  7. LOSARTAN POTASSIUM [Concomitant]
     Indication: HYPERTENSION
     Route: 048

REACTIONS (11)
  - Transient ischaemic attack [Unknown]
  - Chest discomfort [Unknown]
  - Chest pain [Unknown]
  - Body height decreased [Unknown]
  - Pulmonary fibrosis [Unknown]
  - Barrett^s oesophagus [Unknown]
  - Blood glucose decreased [Unknown]
  - Hypertension [Unknown]
  - Gastrooesophageal reflux disease [Unknown]
  - Off label use [Unknown]
  - Drug ineffective [Unknown]
